FAERS Safety Report 16398993 (Version 1)
Quarter: 2019Q2

REPORT INFORMATION
  Report Type: Spontaneous
  Country: FR (occurrence: FR)
  Receive Date: 20190606
  Receipt Date: 20190606
  Transmission Date: 20190711
  Serious: Yes (Disabling)
  Sender: FDA-Public Use
  Company Number: FR-ELI_LILLY_AND_COMPANY-14544795

PATIENT
  Sex: Female
  Weight: 40 kg

DRUGS (3)
  1. FLUORO URACIL [Concomitant]
     Active Substance: FLUOROURACIL
     Indication: COLON CANCER METASTATIC
     Dosage: SHORT INFUSION. SOLN FOR INJECTION
     Dates: start: 20081231, end: 20081231
  2. LEUCOVORIN [FOLINIC ACID] [Concomitant]
     Active Substance: LEUCOVORIN
     Indication: COLON CANCER METASTATIC
     Dosage: SOLN FOR INJECTION
     Route: 042
     Dates: start: 20081231, end: 20081231
  3. CETUXIMAB. [Suspect]
     Active Substance: CETUXIMAB
     Indication: COLON CANCER METASTATIC
     Dosage: 676 MG, QCYCLE
     Route: 042
     Dates: start: 20080507, end: 20081231

REACTIONS (2)
  - Rash [Recovered/Resolved]
  - Panniculitis [Recovered/Resolved]

NARRATIVE: CASE EVENT DATE: 20081231
